FAERS Safety Report 10078596 (Version 2)
Quarter: 2014Q2

REPORT INFORMATION
  Report Type: Spontaneous
  Country: DK (occurrence: DK)
  Receive Date: 20140415
  Receipt Date: 20140415
  Transmission Date: 20141212
  Serious: Yes (Hospitalization)
  Sender: FDA-Public Use
  Company Number: DK-ASTRAZENECA-2013SE51102

PATIENT
  Age: 57 Year
  Sex: Female
  Weight: 79 kg

DRUGS (2)
  1. CRESTOR [Suspect]
     Indication: HYPERLIPIDAEMIA
     Route: 048
     Dates: start: 20100626, end: 20130621
  2. VICTOZA [Suspect]
     Indication: TYPE 2 DIABETES MELLITUS
     Dosage: 6 MG/ML, 1.8 MG EVERYDAY
     Route: 058
     Dates: start: 20101129, end: 20130621

REACTIONS (3)
  - Diarrhoea [Recovered/Resolved]
  - Pancreatitis acute [Recovering/Resolving]
  - Abdominal pain [Recovered/Resolved]
